FAERS Safety Report 10658314 (Version 4)
Quarter: 2015Q1

REPORT INFORMATION
  Report Type: Spontaneous
  Country: US (occurrence: US)
  Receive Date: 20141217
  Receipt Date: 20150206
  Transmission Date: 20150720
  Serious: No
  Sender: FDA-Public Use
  Company Number: US-GLAXOSMITHKLINE-A1061969A

PATIENT
  Age: 37 Year
  Sex: Female
  Weight: 90.7 kg

DRUGS (5)
  1. VOTRIENT [Suspect]
     Active Substance: PAZOPANIB HYDROCHLORIDE
     Indication: MALIGNANT PERITONEAL NEOPLASM
     Dosage: 200  MG TABLETS AT 3 TABLETS (600 MG) DAILY
     Route: 065
     Dates: start: 20130109
  2. VOTRIENT [Suspect]
     Active Substance: PAZOPANIB HYDROCHLORIDE
     Dosage: 400 MG, QD
     Route: 048
     Dates: start: 201312
  3. ZOLINZA [Suspect]
     Active Substance: VORINOSTAT
     Indication: PRODUCT USED FOR UNKNOWN INDICATION
     Route: 065
     Dates: start: 20131209
  4. ZOLINZA [Concomitant]
     Active Substance: VORINOSTAT
  5. NEUPOGEN [Concomitant]
     Active Substance: FILGRASTIM

REACTIONS (7)
  - Hypotension [Recovered/Resolved]
  - Thyroid function test abnormal [Recovered/Resolved]
  - Blood cholesterol increased [Unknown]
  - Fatigue [Unknown]
  - Platelet count decreased [Unknown]
  - Hypothyroidism [Unknown]
  - Hypertension [Unknown]

NARRATIVE: CASE EVENT DATE: 201401
